FAERS Safety Report 14184569 (Version 1)
Quarter: 2017Q4

REPORT INFORMATION
  Report Type: Spontaneous
  Country: US (occurrence: US)
  Receive Date: 20171113
  Receipt Date: 20171113
  Transmission Date: 20180321
  Serious: Yes (Hospitalization, Other)
  Sender: FDA-Public Use
  Company Number: US-009507513-1010USA01164

PATIENT
  Sex: Female

DRUGS (12)
  1. FOSAMAX [Suspect]
     Active Substance: ALENDRONATE SODIUM
     Indication: OSTEOPOROSIS
     Dosage: 10 MG, QD
     Route: 048
     Dates: start: 1999, end: 20010313
  2. ALENDRONATE SODIUM. [Suspect]
     Active Substance: ALENDRONATE SODIUM
     Indication: OSTEOPOROSIS
     Dosage: 70 MG, QW
     Route: 048
     Dates: start: 20080215, end: 20090706
  3. ACTONEL [Suspect]
     Active Substance: RISEDRONATE SODIUM
     Indication: OSTEOPOROSIS
     Dosage: 35 MG, QW
     Route: 048
     Dates: start: 20040928, end: 20041101
  4. ACTONEL [Suspect]
     Active Substance: RISEDRONATE SODIUM
     Dosage: 35 MG, QW
     Route: 048
     Dates: start: 20060412, end: 20060420
  5. ACTONEL [Suspect]
     Active Substance: RISEDRONATE SODIUM
     Dosage: 35 MG, QW
     Route: 048
     Dates: start: 20050813, end: 20051122
  6. FOSAMAX [Suspect]
     Active Substance: ALENDRONATE SODIUM
     Dosage: 5 MG, QD
     Route: 048
     Dates: start: 20010308
  7. FOSAMAX [Suspect]
     Active Substance: ALENDRONATE SODIUM
     Dosage: 70 MG, QW
     Route: 048
     Dates: start: 20010313, end: 20040928
  8. FOSAMAX [Suspect]
     Active Substance: ALENDRONATE SODIUM
     Dosage: 35 MG, QW
     Route: 048
     Dates: start: 20080802, end: 20090313
  9. FOSAMAX [Suspect]
     Active Substance: ALENDRONATE SODIUM
     Dosage: 35 MG, QW
     Route: 048
     Dates: start: 20050713, end: 20100111
  10. FOSAMAX [Suspect]
     Active Substance: ALENDRONATE SODIUM
     Indication: OSTEOPOROSIS
     Dosage: 70 MG, QD
     Route: 048
     Dates: start: 20080607, end: 20080801
  11. FOSAMAX [Suspect]
     Active Substance: ALENDRONATE SODIUM
     Dosage: 70 MG, QW
     Route: 048
     Dates: start: 20060421, end: 20080219
  12. EVISTA [Suspect]
     Active Substance: RALOXIFENE HYDROCHLORIDE
     Indication: OSTEOPOROSIS
     Dosage: 60 MG, QD
     Route: 048
     Dates: start: 20051027

REACTIONS (40)
  - Carotid artery stenosis [Unknown]
  - Blood potassium increased [Recovered/Resolved]
  - Iron deficiency anaemia [Unknown]
  - Carotid artery occlusion [Unknown]
  - Vaginal prolapse [Unknown]
  - Hypothyroidism [Unknown]
  - Syncope [Recovered/Resolved]
  - Sinus congestion [Recovered/Resolved]
  - Inguinal hernia [Unknown]
  - Drug intolerance [Recovered/Resolved]
  - Hypertension [Unknown]
  - Pain [Unknown]
  - Blood urea increased [Recovered/Resolved]
  - Overdose [Unknown]
  - Flatulence [Unknown]
  - Cystocele [Unknown]
  - Vaginal prolapse [Unknown]
  - White blood cell count increased [Unknown]
  - Anaemia [Recovered/Resolved]
  - Sinus operation [Recovered/Resolved]
  - Chronic obstructive pulmonary disease [Unknown]
  - Gastrooesophageal reflux disease [Unknown]
  - Vitamin D deficiency [Unknown]
  - Urinary tract infection [Recovering/Resolving]
  - Glaucoma [Unknown]
  - Hypertension [Unknown]
  - Ingrowing nail [Unknown]
  - Pneumonia [Recovered/Resolved]
  - Low turnover osteopathy [Unknown]
  - Myelodysplastic syndrome [Unknown]
  - Intervertebral disc protrusion [Unknown]
  - Dysphagia [Unknown]
  - Tooth fracture [Unknown]
  - Joint instability [Unknown]
  - Nephrogenic anaemia [Unknown]
  - Femur fracture [Unknown]
  - Blood iron increased [Unknown]
  - Road traffic accident [Unknown]
  - Fibrocystic breast disease [Unknown]
  - Anaemia [Unknown]

NARRATIVE: CASE EVENT DATE: 2001
